FAERS Safety Report 14643407 (Version 1)
Quarter: 2018Q1

REPORT INFORMATION
  Report Type: Spontaneous
  Country: US (occurrence: US)
  Receive Date: 20180315
  Receipt Date: 20180315
  Transmission Date: 20180509
  Serious: No
  Sender: FDA-Public Use
  Company Number: US-009507513-1803USA002286

PATIENT
  Sex: Female

DRUGS (3)
  1. DESLORATADINE. [Suspect]
     Active Substance: DESLORATADINE
  2. CLARINEX [Suspect]
     Active Substance: DESLORATADINE
     Indication: HYPERSENSITIVITY
     Dosage: 1 TABLET A DAY
     Route: 048
  3. CLARINEX [Suspect]
     Active Substance: DESLORATADINE
     Indication: SEASONAL ALLERGY

REACTIONS (3)
  - Drug dose omission [Unknown]
  - Product availability issue [Unknown]
  - Hypersensitivity [Unknown]
